FAERS Safety Report 8016032-0 (Version None)
Quarter: 2011Q4

REPORT INFORMATION
  Report Type: 
  Country: None (occurrence: None)
  Receive Date: 20111230
  Receipt Date: 20111230
  Transmission Date: 20120403
  Serious: Yes (Life-Threatening, Other)
  Sender: FDA-Public Use
  Company Number: None

PATIENT
  Age: 65 Year
  Sex: Female
  Weight: 62.595 kg

DRUGS (2)
  1. GAMUNEX [Concomitant]
     Indication: IDIOPATHIC THROMBOCYTOPENIC PURPURA
     Dates: start: 20111212, end: 20111212
  2. GAMUNEX [Suspect]
     Indication: IMMUNODEFICIENCY COMMON VARIABLE
     Dosage: 25 GRAMS
     Route: 041
     Dates: start: 20111116, end: 20111116

REACTIONS (2)
  - ERYTHEMA [None]
  - URTICARIA [None]
